FAERS Safety Report 18214637 (Version 1)
Quarter: 2020Q3

REPORT INFORMATION
  Report Type: Spontaneous
  Country: US (occurrence: US)
  Receive Date: 20200831
  Receipt Date: 20200831
  Transmission Date: 20201103
  Serious: Yes (Other)
  Sender: FDA-Public Use
  Company Number: US-MYLANLABS-2020M1074302

PATIENT
  Age: 70 Year
  Sex: Male
  Weight: 104 kg

DRUGS (1)
  1. VALSARTAN TABLETS, USP [Suspect]
     Active Substance: VALSARTAN
     Indication: HYPERTENSION
     Dosage: 40 MILLIGRAM
     Route: 048
     Dates: start: 20200711, end: 20200822

REACTIONS (5)
  - Loss of consciousness [Recovered/Resolved]
  - Back pain [Recovering/Resolving]
  - Abdominal pain lower [Recovering/Resolving]
  - Hypertonic bladder [Recovering/Resolving]
  - Illness [Recovering/Resolving]

NARRATIVE: CASE EVENT DATE: 2020
